FAERS Safety Report 8962508 (Version 1)
Quarter: 2012Q4

REPORT INFORMATION
  Report Type: Spontaneous
  Country: US (occurrence: None)
  Receive Date: 20121211
  Receipt Date: 20121211
  Transmission Date: 20130627
  Serious: Yes (Life-Threatening, Hospitalization)
  Sender: FDA-Public Use
  Company Number: None

PATIENT
  Age: 74 Year
  Sex: Male
  Weight: 88.45 kg

DRUGS (1)
  1. PRADAXA [Suspect]
     Route: 048
     Dates: start: 201208, end: 20120825

REACTIONS (1)
  - Haemorrhagic stroke [None]
